FAERS Safety Report 9494440 (Version 1)
Quarter: 2013Q3

REPORT INFORMATION
  Report Type: Report from Study
  Country: US (occurrence: US)
  Receive Date: 20130903
  Receipt Date: 20130903
  Transmission Date: 20140515
  Serious: Yes (Hospitalization)
  Sender: FDA-Public Use
  Company Number: US-ROCHE-1268522

PATIENT
  Sex: Male

DRUGS (1)
  1. NUTROPIN AQ [Suspect]
     Indication: RENAL FAILURE
     Dosage: NUTROPIN AQ 10 MG
     Route: 058

REACTIONS (2)
  - Renal transplant [Unknown]
  - Drug dose omission [Unknown]
